FAERS Safety Report 6130567-7 (Version None)
Quarter: 2009Q1

REPORT INFORMATION
  Report Type: 
  Country: None (occurrence: None)
  Receive Date: 20090324
  Receipt Date: 20090313
  Transmission Date: 20090719
  Serious: Yes (Other)
  Sender: FDA-Public Use
  Company Number: CA-ELI_LILLY_AND_COMPANY-CA200903004134

PATIENT
  Sex: Female

DRUGS (5)
  1. FORTEO [Suspect]
     Indication: OSTEOPOROSIS
     Dosage: 20 UG, DAILY (1/D)
     Dates: start: 20081203
  2. PREMARIN [Concomitant]
  3. MULTI-VITAMIN [Concomitant]
  4. VITAMIN D [Concomitant]
  5. CALCIUM CARBONATE [Concomitant]

REACTIONS (5)
  - MYODESOPSIA [None]
  - RETINAL TEAR [None]
  - VISION BLURRED [None]
  - VISUAL ACUITY REDUCED [None]
  - VITAMIN D DECREASED [None]
